FAERS Safety Report 8280868-1 (Version None)
Quarter: 2012Q2

REPORT INFORMATION
  Report Type: 
  Country: None (occurrence: None)
  Receive Date: 20120412
  Receipt Date: 20120406
  Transmission Date: 20120825
  Serious: Yes (Other)
  Sender: FDA-Public Use
  Company Number: US-ABBOTT-12P-163-0923216-00

PATIENT
  Sex: Female
  Weight: 88.984 kg

DRUGS (5)
  1. HUMIRA [Suspect]
     Dates: start: 20120301, end: 20120301
  2. HUMIRA [Suspect]
     Dates: start: 20111001
  3. DILAUDID [Suspect]
     Indication: SHOULDER OPERATION
     Dosage: HIGH DOSE
     Route: 042
     Dates: start: 20111101, end: 20111101
  4. UNKNOWN MEDICATIONS [Concomitant]
     Indication: SYSTEMIC LUPUS ERYTHEMATOSUS
  5. HUMIRA [Suspect]
     Indication: RHEUMATOID ARTHRITIS
     Dates: start: 20100101

REACTIONS (16)
  - WRIST FRACTURE [None]
  - ASTHENIA [None]
  - OSTEONECROSIS [None]
  - OVERDOSE [None]
  - PAIN IN EXTREMITY [None]
  - BONE LOSS [None]
  - LOSS OF CONSCIOUSNESS [None]
  - FALL [None]
  - BONE GRAFT [None]
  - PAIN [None]
  - CARDIAC ARREST [None]
  - MUSCULOSKELETAL DISORDER [None]
  - UPPER LIMB FRACTURE [None]
  - SYSTEMIC LUPUS ERYTHEMATOSUS [None]
  - UNRESPONSIVE TO STIMULI [None]
  - FEELING ABNORMAL [None]
